FAERS Safety Report 4550503-4 (Version None)
Quarter: 2004Q4

REPORT INFORMATION
  Report Type: 
  Country: None (occurrence: None)
  Receive Date: 20041227
  Receipt Date: 20041116
  Transmission Date: 20050328
  Serious: No
  Sender: FDA-Public Use
  Company Number: 04P-163-0280727-00

PATIENT
  Age: 78 Year
  Sex: Female
  Weight: 52.6173 kg

DRUGS (3)
  1. HUMIRA [Suspect]
     Indication: RHEUMATOID ARTHRITIS
     Dosage: 40 MG, 1 IN 2 WK, SUBCUTANEOUS
     Route: 058
     Dates: start: 20040601, end: 20040929
  2. NAPROXEN SODIUM [Concomitant]
  3. PREDNISONE [Concomitant]

REACTIONS (5)
  - ARTHRALGIA [None]
  - CHROMATURIA [None]
  - JOINT SWELLING [None]
  - OEDEMA PERIPHERAL [None]
  - VISUAL DISTURBANCE [None]
